FAERS Safety Report 9905191 (Version 1)
Quarter: 2014Q1

REPORT INFORMATION
  Report Type: Spontaneous
  Country: BR (occurrence: None)
  Receive Date: 20140211
  Receipt Date: 20140211
  Transmission Date: 20141002
  Serious: Yes (Other)
  Sender: FDA-Public Use
  Company Number: VAL_02973_2014

PATIENT
  Sex: Female
  Weight: 56 kg

DRUGS (1)
  1. LOTENSION [Suspect]
     Indication: HYPERTENSION
     Route: 048

REACTIONS (10)
  - Decreased appetite [None]
  - Crying [None]
  - Tooth fracture [None]
  - Dizziness [None]
  - Osteoporosis [None]
  - Blood cholesterol increased [None]
  - Blood triglycerides increased [None]
  - Nephrolithiasis [None]
  - Renal impairment [None]
  - Nervousness [None]
